FAERS Safety Report 5102524-0 (Version None)
Quarter: 2006Q3

REPORT INFORMATION
  Report Type: 
  Country: None (occurrence: None)
  Receive Date: 20060912
  Receipt Date: 20060905
  Transmission Date: 20061208
  Serious: Yes (Other)
  Sender: FDA-Public Use
  Company Number: 2006AP04141

PATIENT
  Age: 53 Year

DRUGS (1)
  1. MEROPEN [Suspect]

REACTIONS (1)
  - COAGULOPATHY [None]
